FAERS Safety Report 21694945 (Version 1)
Quarter: 2022Q4

REPORT INFORMATION
  Report Type: Report from Study
  Country: US (occurrence: US)
  Receive Date: 20221207
  Receipt Date: 20221207
  Transmission Date: 20230112
  Serious: No
  Sender: FDA-Public Use
  Company Number: US-ABBVIE-4175690

PATIENT
  Age: 33 Year
  Sex: Female

DRUGS (2)
  1. HUMIRA [Suspect]
     Active Substance: ADALIMUMAB
     Indication: Psoriatic arthropathy
     Dosage: CITRATE FREE
     Route: 058
  2. HUMIRA [Suspect]
     Active Substance: ADALIMUMAB
     Indication: Psoriasis

REACTIONS (9)
  - Respiratory disorder [Unknown]
  - Sinus congestion [Recovered/Resolved]
  - Sinus pain [Unknown]
  - Oropharyngeal pain [Unknown]
  - Throat irritation [Recovered/Resolved]
  - Facial pain [Unknown]
  - Ear pain [Unknown]
  - Cough [Unknown]
  - Body temperature increased [Unknown]

NARRATIVE: CASE EVENT DATE: 20221001
